FAERS Safety Report 5454020-9 (Version None)
Quarter: 2007Q3

REPORT INFORMATION
  Report Type: 
  Country: None (occurrence: None)
  Receive Date: 20070917
  Receipt Date: 20070702
  Transmission Date: 20080115
  Serious: Yes (Other)
  Sender: FDA-Public Use
  Company Number: US-ASTRAZENECA-2006UW06049

PATIENT
  Age: 39 Year
  Sex: Male
  Weight: 80 kg

DRUGS (2)
  1. SEROQUEL [Suspect]
     Indication: BIPOLAR DISORDER
     Dosage: 29-900MG
     Route: 048
     Dates: start: 20000101, end: 20051001
  2. SEROQUEL [Suspect]
     Dates: start: 20060101

REACTIONS (1)
  - PANCREATITIS [None]
